FAERS Safety Report 25263072 (Version 1)
Quarter: 2025Q2

REPORT INFORMATION
  Report Type: Spontaneous
  Country: US (occurrence: None)
  Receive Date: 20250501
  Receipt Date: 20250501
  Transmission Date: 20250717
  Serious: Yes (Life-Threatening)
  Sender: FDA-CTU
  Company Number: None

PATIENT
  Age: 57 Year
  Sex: Female
  Weight: 57.8 kg

DRUGS (11)
  1. COSENTYX [Suspect]
     Active Substance: SECUKINUMAB
     Indication: Psoriasis
     Dosage: FREQUENCY : MONTHLY;?
     Route: 058
     Dates: start: 20240724
  2. FARXIGA [Concomitant]
     Active Substance: DAPAGLIFLOZIN PROPANEDIOL
  3. SPIRONOLACTONE [Concomitant]
     Active Substance: SPIRONOLACTONE
  4. LACTULOSE 1 0GM/15ML [Concomitant]
  5. PANTOPRAZOLE [Concomitant]
     Active Substance: PANTOPRAZOLE
  6. PROLIA [Concomitant]
     Active Substance: DENOSUMAB
  7. XIFAXAN [Concomitant]
     Active Substance: RIFAXIMIN
  8. FERROUS SULFATE 325MG TAB [Concomitant]
  9. MIDODRINE 10 MG TAB [Concomitant]
  10. SUMATRIPTAN [Concomitant]
     Active Substance: SUMATRIPTAN
  11. MONTELUKAST SODIUM [Concomitant]
     Active Substance: MONTELUKAST SODIUM

REACTIONS (1)
  - Hepatic vascular thrombosis [None]

NARRATIVE: CASE EVENT DATE: 20250402
